FAERS Safety Report 14993646 (Version 1)
Quarter: 2018Q2

REPORT INFORMATION
  Report Type: Report from Study
  Country: BR (occurrence: BR)
  Receive Date: 20180611
  Receipt Date: 20180611
  Transmission Date: 20180711
  Serious: Yes (Hospitalization, Other)
  Sender: FDA-Public Use
  Company Number: BR-UCBSA-2018024102

PATIENT
  Age: 4 Year
  Sex: Female
  Weight: 16 kg

DRUGS (2)
  1. DEPAKENE [Concomitant]
     Active Substance: VALPROIC ACID
     Indication: SEIZURE
     Dosage: UNK, 2X/DAY (BID)
     Route: 048
     Dates: start: 201404
  2. LEVETIRACETAM. [Suspect]
     Active Substance: LEVETIRACETAM
     Indication: EPILEPSY
     Dosage: 5 ML, 2X/DAY (BID)
     Route: 048
     Dates: start: 2017

REACTIONS (4)
  - Epilepsy [Recovered/Resolved]
  - Seizure [Not Recovered/Not Resolved]
  - Pharyngitis [Unknown]
  - Drug ineffective [Unknown]

NARRATIVE: CASE EVENT DATE: 2017
